FAERS Safety Report 5239952-9 (Version None)
Quarter: 2007Q1

REPORT INFORMATION
  Report Type: 
  Country: None (occurrence: None)
  Receive Date: 20070216
  Receipt Date: 20070205
  Transmission Date: 20070707
  Serious: Yes (Other)
  Sender: FDA-Public Use
  Company Number: DE-PFIZER INC-2006126373

PATIENT
  Sex: Female
  Weight: 54 kg

DRUGS (2)
  1. MEDROXYPROGESTERONE ACETATE [Suspect]
     Indication: CONTRACEPTION
     Dosage: FREQ:1ST INJECTION
     Route: 030
     Dates: start: 20011201, end: 20011201
  2. MEDROXYPROGESTERONE ACETATE [Suspect]
     Indication: MENORRHAGIA

REACTIONS (4)
  - ABDOMINAL PAIN [None]
  - HEPATIC STEATOSIS [None]
  - HEPATOMEGALY [None]
  - INFLUENZA LIKE ILLNESS [None]
